FAERS Safety Report 25538515 (Version 2)
Quarter: 2025Q3

REPORT INFORMATION
  Report Type: Spontaneous
  Country: US (occurrence: US)
  Receive Date: 20250710
  Receipt Date: 20250718
  Transmission Date: 20251020
  Serious: No
  Sender: ASTELLAS
  Company Number: US-ASTELLAS-2025-AER-036003

PATIENT
  Sex: Female

DRUGS (3)
  1. VEOZAH [Suspect]
     Active Substance: FEZOLINETANT
     Indication: Hot flush
     Route: 048
     Dates: start: 2024
  2. VEOZAH [Suspect]
     Active Substance: FEZOLINETANT
     Route: 048
  3. VEOZAH [Suspect]
     Active Substance: FEZOLINETANT
     Route: 048

REACTIONS (2)
  - Fatigue [Not Recovered/Not Resolved]
  - Wrong technique in product usage process [Unknown]

NARRATIVE: CASE EVENT DATE: 20240101
